FAERS Safety Report 5879310-7 (Version None)
Quarter: 2008Q3

REPORT INFORMATION
  Report Type: 
  Country: None (occurrence: None)
  Receive Date: 20080910
  Receipt Date: 20080910
  Transmission Date: 20090109
  Serious: Yes (Hospitalization, Other)
  Sender: FDA-Public Use
  Company Number: None

PATIENT
  Age: 53 Year
  Sex: Female
  Weight: 72.5755 kg

DRUGS (1)
  1. AMBIEN CR [Suspect]
     Indication: INSOMNIA
     Dosage: 1 DAILY PO  (OCCASIONAL)
     Route: 048
     Dates: start: 20080101, end: 20080816

REACTIONS (9)
  - AMNESIA [None]
  - CONCUSSION [None]
  - FACIAL BONES FRACTURE [None]
  - FALL [None]
  - LOSS OF CONSCIOUSNESS [None]
  - PAIN [None]
  - SKULL FRACTURED BASE [None]
  - SOMNAMBULISM [None]
  - WRIST FRACTURE [None]
